FAERS Safety Report 4667024-0 (Version None)
Quarter: 2005Q2

REPORT INFORMATION
  Report Type: 
  Country: None (occurrence: None)
  Receive Date: 20050520
  Receipt Date: 20040409
  Transmission Date: 20051028
  Serious: Yes (Other)
  Sender: FDA-Public Use
  Company Number: PHEH2004US04092

PATIENT
  Age: 73 Year
  Sex: Male

DRUGS (6)
  1. FLOMAX [Concomitant]
     Dosage: .4 MG, QD
  2. CYCLOPHOSPHAMIDE [Concomitant]
     Dosage: 50 MG MWF
  3. MELPHALAN [Concomitant]
     Dosage: 2 MG, UNK
     Dates: start: 20010806, end: 20010806
  4. PREDNISONE TAB [Concomitant]
     Dosage: 20 MG, UNK
     Dates: start: 20010806, end: 20010806
  5. PROCHLORPERAZINE [Concomitant]
     Dosage: 10MG/ 3 TREATMENTS
     Dates: start: 20010806, end: 20020403
  6. AREDIA [Suspect]
     Indication: MULTIPLE MYELOMA
     Dosage: 90 MG OVER 2 HOURS, UNK
     Dates: start: 20010214, end: 20030912

REACTIONS (2)
  - JAW DISORDER [None]
  - OSTEONECROSIS [None]
